FAERS Safety Report 5081997-6 (Version None)
Quarter: 2006Q3

REPORT INFORMATION
  Report Type: 
  Country: None (occurrence: None)
  Receive Date: 20060811
  Receipt Date: 20060801
  Transmission Date: 20061208
  Serious: Yes (Death)
  Sender: FDA-Public Use
  Company Number: 2006096101

PATIENT
  Age: 45 Year
  Sex: Female

DRUGS (4)
  1. XANAX [Suspect]
     Indication: DRUG USE FOR UNKNOWN INDICATION
     Dosage: 1.5 MG (1.5 MG, 1 IN 1 D), ORAL
     Route: 048
     Dates: end: 19940222
  2. ATHYMIL (MIANSERIN HYDROCHLORIDE) [Suspect]
     Indication: DRUG USE FOR UNKNOWN INDICATION
     Dosage: 30 MG (30 MG, 1 IN 1 D)
     Dates: end: 19940222
  3. ACETAMINOPHEN W/ PROPOXYPHENE HCL [Suspect]
     Indication: DRUG USE FOR UNKNOWN INDICATION
     Dosage: 4 DOSE FORMS (1 IN 1 D), ORAL
     Route: 048
     Dates: end: 19940222
  4. TAMOXIFEN CITRATE [Suspect]
     Indication: DRUG USE FOR UNKNOWN INDICATION
     Dosage: 20 MG (20 MG, 1 IN 1 D), ORAL
     Route: 048
     Dates: end: 19940222

REACTIONS (3)
  - HEPATIC FAILURE [None]
  - HEPATITIS [None]
  - PORTAL HYPERTENSION [None]
